FAERS Safety Report 13981855 (Version 1)
Quarter: 2017Q3

REPORT INFORMATION
  Report Type: Spontaneous
  Country: US (occurrence: None)
  Receive Date: 20170915
  Receipt Date: 20170915
  Transmission Date: 20171128
  Serious: Yes (Hospitalization)
  Sender: FDA-Public Use
  Company Number: None

PATIENT
  Sex: Female

DRUGS (3)
  1. MATULANE [Suspect]
     Active Substance: PROCARBAZINE HYDROCHLORIDE
     Indication: HODGKIN^S DISEASE NODULAR SCLEROSIS
     Dosage: DATES OF USE - ONE MONTH?DOSE - 3 CAPS-ODD DAYS, 4 CAPS- EVEN DAYS
     Route: 048
  2. LEUKERAN [Suspect]
     Active Substance: CHLORAMBUCIL
     Indication: HODGKIN^S DISEASE NODULAR SCLEROSIS
     Dosage: DATES OF USE - ONE MONTH
     Route: 048
  3. PREDNISONE. [Concomitant]
     Active Substance: PREDNISONE

REACTIONS (1)
  - Hospitalisation [None]

NARRATIVE: CASE EVENT DATE: 2017
